FAERS Safety Report 4599371-5 (Version None)
Quarter: 2005Q1

REPORT INFORMATION
  Report Type: 
  Country: None (occurrence: None)
  Receive Date: 20050303
  Receipt Date: 20050217
  Transmission Date: 20050727
  Serious: Yes (Death)
  Sender: FDA-Public Use
  Company Number: 2005S1000589

PATIENT
  Age: 66 Year
  Sex: Male

DRUGS (10)
  1. CLOZAPINE [Suspect]
     Dosage: 25 MG QAM + 37.5 MG HS, ORAL
     Route: 048
     Dates: start: 20020601
  2. CALCITONIN-SALMON [Concomitant]
  3. LORAZEPAM [Concomitant]
  4. ACETAMINOPHEN AND HYDROCODONE BITARTRATE [Concomitant]
  5. PHENYTOIN [Concomitant]
  6. LANSOPRAZOLE [Concomitant]
  7. PAROXETINE HCL [Concomitant]
  8. MIDODRINE HCL [Concomitant]
  9. SELEGILINE HCL [Concomitant]
  10. CARBIDOPA AND LEVODOPA [Concomitant]

REACTIONS (1)
  - DEATH [None]
